FAERS Safety Report 9683702 (Version 1)
Quarter: 2013Q4

REPORT INFORMATION
  Report Type: Spontaneous
  Country: US (occurrence: US)
  Receive Date: 20131112
  Receipt Date: 20131112
  Transmission Date: 20140711
  Serious: No
  Sender: FDA-Public Use
  Company Number: US-PFIZER INC-2013320183

PATIENT
  Age: 49 Year
  Sex: Male
  Weight: 90.7 kg

DRUGS (2)
  1. ADVIL [Suspect]
     Indication: MYALGIA
     Dosage: 200 MG, JUST ONCE
     Route: 048
     Dates: start: 20131106, end: 20131106
  2. ADVIL [Suspect]
     Indication: BACK PAIN

REACTIONS (1)
  - Oesophageal pain [Unknown]
